FAERS Safety Report 5969666-9 (Version None)
Quarter: 2008Q4

REPORT INFORMATION
  Report Type: 
  Country: None (occurrence: None)
  Receive Date: 20081126
  Receipt Date: 20080918
  Transmission Date: 20090506
  Serious: No
  Sender: FDA-Public Use
  Company Number: US-ABBOTT-08P-163-0476848-00

PATIENT
  Sex: Female
  Weight: 49.94 kg

DRUGS (4)
  1. SIMCOR [Suspect]
     Indication: DRUG USE FOR UNKNOWN INDICATION
     Dosage: 500MG/20MG, AT BEDTIME
     Dates: start: 20080911
  2. MOMETASONE FUROATE [Concomitant]
     Indication: NASAL DISCOMFORT
     Dosage: SPRAY
  3. GUAIFENESIN [Concomitant]
     Indication: NASAL DISCOMFORT
     Route: 048
  4. CETIRIZINE HYDROCHLORIDE [Concomitant]
     Indication: NASAL DISCOMFORT
     Dosage: GENERIC
     Route: 048

REACTIONS (1)
  - HEADACHE [None]
